FAERS Safety Report 8588044-X (Version None)
Quarter: 2012Q3

REPORT INFORMATION
  Report Type: 
  Country: None (occurrence: None)
  Receive Date: 20120731
  Receipt Date: 20120720
  Transmission Date: 20120928
  Serious: Yes (Other)
  Sender: FDA-Public Use
  Company Number: 2012P1050850

PATIENT
  Age: 44 Year
  Sex: Female
  Weight: 77.1115 kg

DRUGS (5)
  1. DARAPRIM [Suspect]
     Indication: TOXOPLASMOSIS
     Dosage: 100 MG;X1;PO 25 MG;QD;PO
     Route: 048
     Dates: start: 20120630, end: 20120630
  2. DARAPRIM [Suspect]
     Indication: TOXOPLASMOSIS
     Dosage: 100 MG;X1;PO 25 MG;QD;PO
     Route: 048
     Dates: start: 20120701, end: 20120711
  3. SULFADIAZINE [Suspect]
     Indication: TOXOPLASMOSIS
     Dosage: 2000 MG;QD;
     Dates: start: 20120630, end: 20120711
  4. SYNTHROID [Concomitant]
  5. SIMVASTATIN [Concomitant]

REACTIONS (5)
  - RASH GENERALISED [None]
  - DRUG HYPERSENSITIVITY [None]
  - DEHYDRATION [None]
  - INFLUENZA LIKE ILLNESS [None]
  - HYPOPHAGIA [None]
